FAERS Safety Report 5553466-8 (Version None)
Quarter: 2007Q4

REPORT INFORMATION
  Report Type: 
  Country: None (occurrence: None)
  Receive Date: 20071213
  Receipt Date: 20071205
  Transmission Date: 20080405
  Serious: Yes (Other)
  Sender: FDA-Public Use
  Company Number: CA-JNJFOC-20071107381

PATIENT
  Sex: Female
  Weight: 40.82 kg

DRUGS (16)
  1. DURAGESIC-100 [Suspect]
     Indication: FIBROMYALGIA
     Route: 062
  2. DURAGESIC-100 [Suspect]
     Indication: PAIN
     Route: 062
  3. ALBUTEROL [Concomitant]
     Indication: ASTHMA
     Route: 065
  4. VENLAFAXINE HCL [Concomitant]
     Indication: AFFECTIVE DISORDER
     Route: 065
  5. AMITRIPTLINE HCL [Concomitant]
     Indication: PAIN
     Route: 065
  6. DOMPERIDONE [Concomitant]
     Indication: GASTROINTESTINAL DISORDER
     Route: 065
  7. TEMAZEPAM [Concomitant]
     Indication: INSOMNIA
     Route: 065
  8. ATARAX [Concomitant]
     Route: 065
  9. RABEPRAZOLE SODIUM [Concomitant]
     Indication: GASTROINTESTINAL DISORDER
     Route: 065
  10. VITAMIN D [Concomitant]
     Route: 065
  11. PATANOL [Concomitant]
     Indication: HYPERSENSITIVITY
     Route: 065
  12. NASONEX [Concomitant]
     Route: 065
  13. PALAFER [Concomitant]
     Route: 065
  14. SENOKOT [Concomitant]
     Indication: CONSTIPATION
     Route: 065
  15. LORAZEPAM [Concomitant]
     Indication: ANXIETY
     Route: 065
  16. LORATADINE [Concomitant]
     Indication: HYPERSENSITIVITY
     Route: 065

REACTIONS (3)
  - CHEST DISCOMFORT [None]
  - DYSPNOEA [None]
  - HEART RATE IRREGULAR [None]
